FAERS Safety Report 4687122-5 (Version None)
Quarter: 2005Q2

REPORT INFORMATION
  Report Type: 
  Country: None (occurrence: None)
  Receive Date: 20050608
  Receipt Date: 20050526
  Transmission Date: 20051028
  Serious: Yes (Other)
  Sender: FDA-Public Use
  Company Number: S05-USA-02744-01

PATIENT
  Age: 48 Year
  Sex: Female

DRUGS (15)
  1. LEXAPRO [Suspect]
     Indication: ANXIETY
     Dosage: 40 MG ONCE PO
     Route: 048
     Dates: start: 20040101, end: 20040101
  2. LEXAPRO [Suspect]
     Indication: DEPRESSION
     Dosage: 40 MG ONCE PO
     Route: 048
     Dates: start: 20040101, end: 20040101
  3. LEXAPRO [Suspect]
     Indication: ANXIETY
     Dosage: 20 MG QD PO
     Route: 048
     Dates: start: 20040101
  4. LEXAPRO [Suspect]
     Indication: DEPRESSION
     Dosage: 20 MG QD PO
     Route: 048
     Dates: start: 20040101
  5. LEXAPRO [Suspect]
     Indication: ANXIETY
     Dosage: 10 MG QD PO
     Route: 048
     Dates: start: 20040101, end: 20040401
  6. LEXAPRO [Suspect]
     Indication: DEPRESSION
     Dosage: 10 MG QD PO
     Route: 048
     Dates: start: 20040101, end: 20040401
  7. LEXAPRO [Suspect]
     Indication: ANXIETY
     Dosage: 20 MG QD PO
     Route: 048
     Dates: start: 20040401, end: 20040101
  8. LEXAPRO [Suspect]
     Indication: DEPRESSION
     Dosage: 20 MG QD PO
     Route: 048
     Dates: start: 20040401, end: 20040101
  9. ESTRADERM [Concomitant]
  10. ACTONEL [Concomitant]
  11. NASALCROM [Concomitant]
  12. OS-CAL (CALCIUM) [Concomitant]
  13. DIAZEPAM [Concomitant]
  14. ASPIRIN [Concomitant]
  15. VITAMIN E [Concomitant]

REACTIONS (11)
  - AMNESIA [None]
  - ASTHENIA [None]
  - BLOOD CHOLESTEROL INCREASED [None]
  - DIZZINESS [None]
  - DYSPNOEA [None]
  - FALL [None]
  - IRRITABLE BOWEL SYNDROME [None]
  - LETHARGY [None]
  - SINUS BRADYCARDIA [None]
  - SYNCOPE [None]
  - WEIGHT INCREASED [None]
